FAERS Safety Report 14505462 (Version 2)
Quarter: 2018Q1

REPORT INFORMATION
  Report Type: Other
  Country: FR (occurrence: FR)
  Receive Date: 20180208
  Receipt Date: 20180219
  Transmission Date: 20180509
  Serious: Yes (Hospitalization)
  Sender: FDA-Public Use
  Company Number: FR-VELOXIS PHARMACEUTICALS-2041636

PATIENT
  Age: 24 Month
  Sex: Male

DRUGS (5)
  1. ENVARSUS XR [Suspect]
     Active Substance: TACROLIMUS
     Indication: GRAFT VERSUS HOST DISEASE IN GASTROINTESTINAL TRACT
  2. METHOTREXATE. [Concomitant]
     Active Substance: METHOTREXATE
  3. CYCLOSPORINE. [Concomitant]
     Active Substance: CYCLOSPORINE
  4. INFLIXIMAB [Concomitant]
     Active Substance: INFLIXIMAB
  5. INOLIMOMAB [Concomitant]
     Active Substance: INOLIMOMAB

REACTIONS (2)
  - Chronic graft versus host disease in intestine [Recovered/Resolved]
  - Intentional product use issue [Unknown]
